FAERS Safety Report 23217779 (Version 1)
Quarter: 2023Q4

REPORT INFORMATION
  Report Type: Spontaneous
  Country: IT (occurrence: IT)
  Receive Date: 20231122
  Receipt Date: 20231122
  Transmission Date: 20240109
  Serious: Yes (Other)
  Sender: FDA-Public Use
  Company Number: IT-INSUD PHARMA-2311IT08081

PATIENT

DRUGS (1)
  1. TESTOSTERONE [Suspect]
     Active Substance: TESTOSTERONE
     Indication: Androgen replacement therapy
     Dosage: UNK
     Route: 065

REACTIONS (2)
  - Brugada syndrome [Recovered/Resolved]
  - Cardiac arrest [Recovered/Resolved]
